FAERS Safety Report 5635300-0 (Version None)
Quarter: 2008Q1

REPORT INFORMATION
  Report Type: 
  Country: None (occurrence: None)
  Receive Date: 20080222
  Receipt Date: 20080214
  Transmission Date: 20080703
  Serious: Yes (Other)
  Sender: FDA-Public Use
  Company Number: US-GENENTECH-256037

PATIENT
  Sex: Female

DRUGS (1)
  1. RITUXAN [Suspect]
     Indication: LYMPHOMA
     Route: 042

REACTIONS (2)
  - COLORECTAL CANCER [None]
  - LYMPHOMA [None]
